FAERS Safety Report 20290097 (Version 1)
Quarter: 2022Q1

REPORT INFORMATION
  Report Type: Report from Study
  Country: US (occurrence: US)
  Receive Date: 20220104
  Receipt Date: 20220104
  Transmission Date: 20220424
  Serious: Yes (Death, Hospitalization, Other)
  Sender: FDA-Public Use
  Company Number: US-MYLANLABS-2021M1097985

PATIENT
  Age: 10 Year
  Sex: Female

DRUGS (3)
  1. ATENOLOL [Suspect]
     Active Substance: ATENOLOL
     Indication: Atrial tachycardia
     Dosage: UNK
     Route: 065
  2. SOTALOL [Suspect]
     Active Substance: SOTALOL
     Indication: Atrial tachycardia
     Dosage: 80 MILLIGRAM, BID, 123 MG/M2/DAY
     Route: 048
  3. DIGOXIN [Suspect]
     Active Substance: DIGOXIN
     Indication: Atrial tachycardia
     Dosage: UNK
     Route: 065

REACTIONS (4)
  - Torsade de pointes [Fatal]
  - Cardiac arrest [Fatal]
  - Drug ineffective [Unknown]
  - Off label use [Unknown]
